FAERS Safety Report 5057510-6 (Version None)
Quarter: 2006Q3

REPORT INFORMATION
  Report Type: 
  Country: None (occurrence: None)
  Receive Date: 20060721
  Receipt Date: 20051101
  Transmission Date: 20061208
  Serious: No
  Sender: FDA-Public Use
  Company Number: US-GLAXOSMITHKLINE-A0580480A

PATIENT
  Age: 89 Year
  Sex: Female

DRUGS (4)
  1. AVANDIA [Suspect]
     Route: 048
     Dates: start: 20050701
  2. ZOLOFT [Concomitant]
  3. WARFARIN SODIUM [Concomitant]
  4. ACETAMINOPHEN [Concomitant]

REACTIONS (3)
  - FALL [None]
  - FATIGUE [None]
  - OEDEMA PERIPHERAL [None]
